FAERS Safety Report 17012740 (Version 1)
Quarter: 2019Q4

REPORT INFORMATION
  Report Type: Spontaneous
  Country: US (occurrence: US)
  Receive Date: 20191001
  Receipt Date: 20191001
  Transmission Date: 20200122
  Serious: Yes (Death, Life-Threatening, Hospitalization, Other)
  Sender: FDA-Public Use
  Company Number: None

PATIENT
  Age: 68 Year
  Sex: Female
  Weight: 66 kg

DRUGS (1)
  1. KEYTRUDA [Suspect]
     Active Substance: PEMBROLIZUMAB
     Indication: LUNG NEOPLASM MALIGNANT
     Route: 042
     Dates: start: 20190703, end: 20190724

REACTIONS (9)
  - Hip fracture [None]
  - Fall [None]
  - Sepsis [None]
  - Hypotension [None]
  - Blood culture positive [None]
  - Bacterial infection [None]
  - Stevens-Johnson syndrome [None]
  - Lichenoid keratosis [None]
  - Respiratory failure [None]

NARRATIVE: CASE EVENT DATE: 20190802
